FAERS Safety Report 21631792 (Version 1)
Quarter: 2022Q4

REPORT INFORMATION
  Report Type: Report from Study
  Country: US (occurrence: US)
  Receive Date: 20221123
  Receipt Date: 20221123
  Transmission Date: 20230113
  Serious: No
  Sender: FDA-Public Use
  Company Number: US-ABBVIE-20K-163-3326398-00

PATIENT
  Age: 58 Year
  Sex: Male

DRUGS (6)
  1. HUMIRA [Suspect]
     Active Substance: ADALIMUMAB
     Indication: Colitis ulcerative
     Route: 058
     Dates: start: 20140607, end: 20161229
  2. LIALDA [Concomitant]
     Active Substance: MESALAMINE
     Indication: Colitis ulcerative
     Route: 048
     Dates: start: 20070619, end: 20220616
  3. CANASA [Concomitant]
     Active Substance: MESALAMINE
     Indication: Colitis ulcerative
     Dosage: AT NIGHT
     Route: 054
     Dates: start: 20150928, end: 20220616
  4. PREDNISONE [Concomitant]
     Active Substance: PREDNISONE
     Indication: Colitis ulcerative
     Route: 048
     Dates: start: 20160606, end: 20220616
  5. PREDNISONE [Concomitant]
     Active Substance: PREDNISONE
     Indication: Colitis ulcerative
     Dosage: AT NIGHT
     Route: 048
     Dates: start: 20170629, end: 20220616
  6. ASPIRIN [Concomitant]
     Active Substance: ASPIRIN
     Indication: Arrhythmia prophylaxis
     Route: 048
     Dates: start: 201806, end: 20220616

REACTIONS (1)
  - Colitis ulcerative [Recovered/Resolved]

NARRATIVE: CASE EVENT DATE: 20200211
